FAERS Safety Report 4398196-3 (Version None)
Quarter: 2004Q3

REPORT INFORMATION
  Report Type: 
  Country: None (occurrence: None)
  Receive Date: 20040713
  Receipt Date: 20040629
  Transmission Date: 20050211
  Serious: Yes (Death, Hospitalization, Disabling)
  Sender: FDA-Public Use
  Company Number: EMADSS2002005992

PATIENT
  Age: 60 Year
  Sex: Female
  Weight: 67 kg

DRUGS (7)
  1. REMICADE [Suspect]
     Indication: RHEUMATOID ARTHRITIS
     Dosage: SEE IMAGE
     Route: 041
     Dates: start: 20020326, end: 20020326
  2. REMICADE [Suspect]
     Indication: RHEUMATOID ARTHRITIS
     Dosage: SEE IMAGE
     Route: 041
     Dates: start: 20020408, end: 20020408
  3. AZATHIOPRINE [Concomitant]
  4. LISINOPRIL [Concomitant]
  5. PREDNISOLONE [Concomitant]
  6. ZANTAC [Concomitant]
  7. RELEFLEX (NABUMETONE) [Concomitant]

REACTIONS (4)
  - ALVEOLITIS [None]
  - DYSPNOEA EXACERBATED [None]
  - LOWER RESPIRATORY TRACT INFECTION [None]
  - PULMONARY FIBROSIS [None]
